FAERS Safety Report 19436175 (Version 1)
Quarter: 2021Q2

REPORT INFORMATION
  Report Type: Spontaneous
  Country: LB (occurrence: LB)
  Receive Date: 20210618
  Receipt Date: 20210618
  Transmission Date: 20210717
  Serious: Yes (Hospitalization)
  Sender: FDA-Public Use
  Company Number: LB-ASTRAZENECA-2021A520625

PATIENT
  Sex: Female

DRUGS (2)
  1. FASLODEX [Suspect]
     Active Substance: FULVESTRANT
     Indication: OESTROGEN RECEPTOR ASSAY POSITIVE
     Route: 030
     Dates: start: 202102, end: 202102
  2. IBRANCE [Suspect]
     Active Substance: PALBOCICLIB
     Route: 065

REACTIONS (1)
  - Immunodeficiency [Unknown]
